FAERS Safety Report 13743543 (Version 6)
Quarter: 2017Q4

REPORT INFORMATION
  Report Type: Spontaneous
  Country: US (occurrence: US)
  Receive Date: 20170711
  Receipt Date: 20171211
  Transmission Date: 20180320
  Serious: Yes (Other)
  Sender: FDA-Public Use
  Company Number: PHEH2017US021203

PATIENT
  Age: 27 Year
  Sex: Female
  Weight: 91.16 kg

DRUGS (1)
  1. ZOFRAN [Suspect]
     Active Substance: ONDANSETRON HYDROCHLORIDE
     Indication: VOMITING IN PREGNANCY
     Route: 065
     Dates: start: 201303, end: 201304

REACTIONS (13)
  - Product use in unapproved indication [Unknown]
  - Complication of pregnancy [Unknown]
  - Emotional distress [Unknown]
  - Leiomyoma [Unknown]
  - Cervical incompetence [Unknown]
  - Placenta accreta [Unknown]
  - Injury [Unknown]
  - Urinary tract infection [Unknown]
  - Premature labour [Unknown]
  - Maternal exposure during pregnancy [Unknown]
  - Anxiety [Unknown]
  - Premature delivery [Unknown]
  - Amniotic cavity infection [Unknown]

NARRATIVE: CASE EVENT DATE: 20130505
